FAERS Safety Report 7249437-6 (Version None)
Quarter: 2011Q1

REPORT INFORMATION
  Report Type: 
  Country: None (occurrence: None)
  Receive Date: 20110128
  Receipt Date: 20101220
  Transmission Date: 20110831
  Serious: Yes (Life-Threatening, Hospitalization, Disabling)
  Sender: FDA-Public Use
  Company Number: US-BAYER-2010-007153

PATIENT
  Sex: Female

DRUGS (6)
  1. NASONEX [Concomitant]
     Indication: BRONCHITIS
     Dosage: UNK UNK, QD
     Route: 045
  2. ASMANEX TWISTHALER [Suspect]
     Indication: BRONCHITIS
     Dosage: 220 MCG/24HR, BID
     Route: 045
  3. ORAL CONTRACEPTIVE NOS [Concomitant]
  4. COSOPT [Concomitant]
  5. ALPHAGAN [Concomitant]
  6. AVELOX [Suspect]
     Indication: BRONCHITIS
     Dosage: 400 MG, QD
     Dates: end: 20101219

REACTIONS (10)
  - BLOOD PRESSURE DECREASED [None]
  - ABDOMINAL PAIN [None]
  - VOMITING [None]
  - ALLERGIC OEDEMA [None]
  - HOT FLUSH [None]
  - RASH ERYTHEMATOUS [None]
  - LIP SWELLING [None]
  - BOWEL MOVEMENT IRREGULARITY [None]
  - OEDEMA PERIPHERAL [None]
  - ANAPHYLACTIC SHOCK [None]
